FAERS Safety Report 10959192 (Version 1)
Quarter: 2015Q1

REPORT INFORMATION
  Report Type: Spontaneous
  Country: US (occurrence: US)
  Receive Date: 20150327
  Receipt Date: 20150327
  Transmission Date: 20150721
  Serious: Yes (Death)
  Sender: FDA-Public Use
  Company Number: US-CIPLA LTD.-2015US02347

PATIENT

DRUGS (10)
  1. SALICYLATE [Suspect]
     Active Substance: SALICYLIC ACID
  2. QUETIAPINE [Suspect]
     Active Substance: QUETIAPINE
  3. ANGIOTENSIN CONVERTING ENZYME INHIBITOR [Suspect]
     Active Substance: UNSPECIFIED INGREDIENT
  4. SIMVASTATIN. [Suspect]
     Active Substance: SIMVASTATIN
  5. BUPROPION [Suspect]
     Active Substance: BUPROPION
  6. DESFENLAFAXINE [Suspect]
     Active Substance: DESVENLAFAXINE
  7. CARVEDILOL. [Suspect]
     Active Substance: CARVEDILOL
  8. ACETAMINOPHEN/HYDROCODONE [Suspect]
     Active Substance: ACETAMINOPHEN\HYDROCODONE
  9. BETA BLOCKER [Suspect]
     Active Substance: UNSPECIFIED INGREDIENT
  10. WARFARIN [Suspect]
     Active Substance: WARFARIN

REACTIONS (1)
  - Completed suicide [Fatal]
